FAERS Safety Report 19913108 (Version 1)
Quarter: 2021Q4

REPORT INFORMATION
  Report Type: Other
  Country: CA (occurrence: CA)
  Receive Date: 20211004
  Receipt Date: 20211004
  Transmission Date: 20220303
  Serious: Yes (Disabling)
  Sender: FDA-Public Use
  Company Number: CA-APOTEX-2021AP043324

PATIENT
  Age: 38 Year
  Sex: Female
  Weight: 61.68 kg

DRUGS (3)
  1. DULOXETINE [Suspect]
     Active Substance: DULOXETINE
     Indication: Pain
     Dosage: UNK
     Route: 065
  2. ALYSENA [Concomitant]
     Indication: Product used for unknown indication
     Dosage: UNK
     Route: 065
  3. IRBESARTAN [Concomitant]
     Active Substance: IRBESARTAN
     Indication: Product used for unknown indication
     Dosage: UNK
     Route: 065

REACTIONS (18)
  - Memory impairment [Recovering/Resolving]
  - Antidepressant discontinuation syndrome [Recovering/Resolving]
  - Electric shock sensation [Recovering/Resolving]
  - Faeces soft [Recovering/Resolving]
  - Frequent bowel movements [Recovering/Resolving]
  - Gastrointestinal disorder [Recovering/Resolving]
  - Anorgasmia [Recovering/Resolving]
  - Constipation [Recovering/Resolving]
  - Fatigue [Recovering/Resolving]
  - Hyperhidrosis [Recovering/Resolving]
  - Initial insomnia [Recovering/Resolving]
  - Irritability [Recovering/Resolving]
  - Disturbance in attention [Recovering/Resolving]
  - Nausea [Recovering/Resolving]
  - Poor quality sleep [Recovering/Resolving]
  - Sleep disorder [Recovering/Resolving]
  - Somnolence [Recovering/Resolving]
  - Withdrawal syndrome [Recovering/Resolving]
